FAERS Safety Report 8858523 (Version 1)
Quarter: 2012Q4

REPORT INFORMATION
  Report Type: 
  Country: FI (occurrence: FI)
  Receive Date: 20121024
  Receipt Date: 20121024
  Transmission Date: 20130627
  Serious: Yes (Other)
  Sender: FDA-Public Use
  Company Number: PHHY2012FI094507

PATIENT
  Age: 55 Year
  Sex: Male

DRUGS (1)
  1. LEPONEX [Suspect]
     Dosage: 500 mg, Daily
     Dates: end: 20121012

REACTIONS (3)
  - Impulsive behaviour [Not Recovered/Not Resolved]
  - Neutrophil count decreased [Not Recovered/Not Resolved]
  - White blood cell count decreased [Not Recovered/Not Resolved]
